FAERS Safety Report 13743689 (Version 1)
Quarter: 2017Q3

REPORT INFORMATION
  Report Type: Spontaneous
  Country: US (occurrence: US)
  Receive Date: 20170711
  Receipt Date: 20170711
  Transmission Date: 20171127
  Serious: Yes (Hospitalization, Other)
  Sender: FDA-Public Use
  Company Number: US-TEVA-786377USA

PATIENT
  Age: 57 Year
  Sex: Male

DRUGS (10)
  1. PROPOFOL. [Concomitant]
     Active Substance: PROPOFOL
     Indication: INDUCTION OF ANAESTHESIA
     Dosage: 200 MG
     Route: 065
  2. REMIFENTANIL [Concomitant]
     Active Substance: REMIFENTANIL
     Indication: MAINTENANCE OF ANAESTHESIA
     Dosage: 75 MICROG/KG/MIN
     Route: 065
  3. PHENYLEPHRINE [Concomitant]
     Active Substance: PHENYLEPHRINE\PHENYLEPHRINE HYDROCHLORIDE
     Dosage: 75 MICROG/MIN
     Route: 065
  4. METOPROLOL SUCCINATE. [Concomitant]
     Active Substance: METOPROLOL SUCCINATE
     Indication: HYPERTENSION
     Route: 065
  5. SUCCINYLCHOLINE CHLORIDE. [Concomitant]
     Active Substance: SUCCINYLCHOLINE CHLORIDE
     Indication: INDUCTION OF ANAESTHESIA
     Dosage: 100 MG
     Route: 065
  6. PROPOFOL. [Concomitant]
     Active Substance: PROPOFOL
     Indication: MAINTENANCE OF ANAESTHESIA
     Dosage: 75 MICROG/KG/MIN
     Route: 065
  7. LISINOPRIL. [Concomitant]
     Active Substance: LISINOPRIL
     Indication: HYPERTENSION
     Route: 065
  8. ADENOSINE. [Suspect]
     Active Substance: ADENOSINE
     Dosage: FOLLOWED BY 18 MG
     Route: 040
  9. ADENOSINE. [Suspect]
     Active Substance: ADENOSINE
     Dosage: 12 MG FOLLOWED BY
     Route: 040
  10. FENTANYL. [Concomitant]
     Active Substance: FENTANYL
     Indication: INDUCTION OF ANAESTHESIA
     Dosage: 50 MICROG
     Route: 065

REACTIONS (2)
  - Hypotension [Recovered/Resolved]
  - Anaphylactic reaction [Recovered/Resolved]
